FAERS Safety Report 10163353 (Version 2)
Quarter: 2014Q2

REPORT INFORMATION
  Report Type: Spontaneous
  Country: PT (occurrence: PT)
  Receive Date: 20140509
  Receipt Date: 20140515
  Transmission Date: 20141212
  Serious: Yes (Other)
  Sender: FDA-Public Use
  Company Number: PT-PFIZER INC-2014124674

PATIENT
  Age: 50 Year
  Sex: Female

DRUGS (1)
  1. LYRICA [Suspect]
     Dosage: 150 MG, UNK

REACTIONS (3)
  - Abasia [Unknown]
  - Limb discomfort [Unknown]
  - Fatigue [Unknown]
